FAERS Safety Report 18168680 (Version 2)
Quarter: 2020Q4

REPORT INFORMATION
  Report Type: Spontaneous
  Country: US (occurrence: US)
  Receive Date: 20200818
  Receipt Date: 20201016
  Transmission Date: 20210113
  Serious: Yes (Other)
  Sender: FDA-Public Use
  Company Number: US-TEVA-2020-US-1816700

PATIENT
  Age: 35 Year
  Sex: Male

DRUGS (31)
  1. SUBOXONE [Suspect]
     Active Substance: BUPRENORPHINE HYDROCHLORIDE\NALOXONE HYDROCHLORIDE
     Route: 065
  2. NALOXONE [Concomitant]
     Active Substance: NALOXONE
     Dosage: .5 MILLIGRAM DAILY;
     Route: 060
  3. ZOLOFT [Concomitant]
     Active Substance: SERTRALINE HYDROCHLORIDE
     Dosage: 150 MILLIGRAM DAILY;
     Route: 048
  4. ZYPREXA [Concomitant]
     Active Substance: OLANZAPINE
     Route: 030
  5. ALPRAZOLAM. [Concomitant]
     Active Substance: ALPRAZOLAM
  6. ENDOCET [Concomitant]
     Active Substance: ACETAMINOPHEN\OXYCODONE HYDROCHLORIDE
  7. ZOLOFT [Concomitant]
     Active Substance: SERTRALINE HYDROCHLORIDE
  8. HYDROCODONE BITARTATRATE [Suspect]
     Active Substance: HYDROCODONE BITARTRATE
     Route: 065
  9. BUPRENORPHINE. [Concomitant]
     Active Substance: BUPRENORPHINE
     Dosage: 8 MILLIGRAM DAILY;
     Route: 060
  10. KETOROLAC [Concomitant]
     Active Substance: KETOROLAC TROMETHAMINE
     Route: 042
  11. ONDANSETRON HCL [Concomitant]
     Active Substance: ONDANSETRON HYDROCHLORIDE
     Route: 042
  12. OXYCODONE [Suspect]
     Active Substance: OXYCODONE
     Route: 065
  13. OXYCONTIN [Suspect]
     Active Substance: OXYCODONE HYDROCHLORIDE
     Route: 065
  14. ACETAMINOPHEN. [Suspect]
     Active Substance: ACETAMINOPHEN
     Route: 065
  15. NALTREXONE [Concomitant]
     Active Substance: NALTREXONE
     Dosage: 50 MILLIGRAM DAILY;
     Route: 048
     Dates: start: 20180906
  16. NALOXONE [Concomitant]
     Active Substance: NALOXONE
     Dosage: 2 MILLIGRAM DAILY;
     Route: 060
  17. EFFEXOR XR [Concomitant]
     Active Substance: VENLAFAXINE HYDROCHLORIDE
     Dosage: 300 MILLIGRAM DAILY;
     Route: 048
  18. ASPIRIN. [Concomitant]
     Active Substance: ASPIRIN
     Route: 048
  19. ROXICET [Concomitant]
     Active Substance: ACETAMINOPHEN\OXYCODONE HYDROCHLORIDE
  20. SERTRALINE [Concomitant]
     Active Substance: SERTRALINE HYDROCHLORIDE
     Dosage: 200 MILLIGRAM DAILY;
     Route: 048
     Dates: start: 20180824, end: 20181008
  21. TRAMADOL. [Suspect]
     Active Substance: TRAMADOL
     Route: 065
  22. HYDROMORPHONE [Suspect]
     Active Substance: HYDROMORPHONE
     Route: 065
  23. VENLAFAXINE HCL [Concomitant]
     Active Substance: VENLAFAXINE HYDROCHLORIDE
     Dosage: DOSE: 75 MG, 3 CAPSULES AT MORNING
     Route: 048
     Dates: start: 20181008
  24. XANAX [Concomitant]
     Active Substance: ALPRAZOLAM
     Dosage: TAKE 2.5 MG DAILY
  25. XANAX [Concomitant]
     Active Substance: ALPRAZOLAM
     Dosage: 3 MILLIGRAM DAILY;
  26. SODIUM CHLORIDE. [Concomitant]
     Active Substance: SODIUM CHLORIDE
     Route: 042
  27. MARIJUANA [Concomitant]
     Active Substance: CANNABIS SATIVA SUBSP. INDICA TOP
  28. DILAUDID [Suspect]
     Active Substance: HYDROMORPHONE HYDROCHLORIDE
     Route: 065
  29. PERCOCET [Suspect]
     Active Substance: ACETAMINOPHEN\OXYCODONE HYDROCHLORIDE
     Route: 065
  30. BUPRENORPHINE. [Concomitant]
     Active Substance: BUPRENORPHINE
     Dosage: 2 MILLIGRAM DAILY;
     Route: 060
  31. OXYCODONE-ACETAMINOPHEN [Concomitant]
     Active Substance: ACETAMINOPHEN\OXYCODONE HYDROCHLORIDE
     Dosage: OXYCODONE: 5 MG AND ACETAMINOPHEN: 325 MG

REACTIONS (8)
  - Homicidal ideation [Unknown]
  - Drug dependence [Unknown]
  - Personal relationship issue [Unknown]
  - Gastroenteritis [Unknown]
  - Chest pain [Unknown]
  - Suicidal behaviour [Unknown]
  - Loss of employment [Unknown]
  - Product prescribing error [Unknown]

NARRATIVE: CASE EVENT DATE: 201212
